FAERS Safety Report 4584549-7 (Version None)
Quarter: 2005Q1

REPORT INFORMATION
  Report Type: 
  Country: None (occurrence: None)
  Receive Date: 20050216
  Receipt Date: 20041122
  Transmission Date: 20050727
  Serious: Yes (Hospitalization)
  Sender: FDA-Public Use
  Company Number: US-ABBOTT-04P-163-0281447-00

PATIENT
  Sex: Female
  Weight: 58.112 kg

DRUGS (11)
  1. HUMIRA [Suspect]
     Indication: RHEUMATOID ARTHRITIS
     Route: 058
     Dates: start: 20040101, end: 20041201
  2. HUMIRA [Suspect]
     Route: 058
     Dates: start: 20041201, end: 20050101
  3. HUMIRA [Suspect]
     Route: 058
     Dates: start: 20050101
  4. PREDNISONE [Concomitant]
     Indication: RHEUMATOID ARTHRITIS
     Route: 048
  5. METHOTREXATE SODIUM [Concomitant]
     Indication: RHEUMATOID ARTHRITIS
     Route: 048
  6. PRENEVIL [Concomitant]
     Indication: BLOOD PRESSURE INCREASED
     Route: 048
  7. ATENOLOL [Concomitant]
     Indication: BLOOD PRESSURE INCREASED
     Route: 048
  8. ATENOLOL [Concomitant]
     Route: 048
  9. DIOVAN [Concomitant]
     Indication: BLOOD PRESSURE INCREASED
     Route: 048
  10. FOLIC ACID [Concomitant]
     Indication: RHEUMATOID ARTHRITIS
     Route: 048
  11. BLOCKADRON [Concomitant]
     Indication: HEART RATE INCREASED
     Route: 048

REACTIONS (5)
  - BRONCHITIS [None]
  - DENTAL CARIES [None]
  - DIVERTICULITIS [None]
  - FEELING ABNORMAL [None]
  - NASOPHARYNGITIS [None]
